FAERS Safety Report 22033794 (Version 1)
Quarter: 2023Q1

REPORT INFORMATION
  Report Type: Spontaneous
  Country: US (occurrence: None)
  Receive Date: 20230222
  Receipt Date: 20230222
  Transmission Date: 20230418
  Serious: Yes (Other)
  Sender: FDA-Public Use
  Company Number: None

PATIENT
  Age: 51 Year
  Sex: Female

DRUGS (2)
  1. CAPECITABINE [Suspect]
     Active Substance: CAPECITABINE
     Indication: Breast cancer female
     Dosage: 5000MG 3 TABS BID BY MOUTH
     Route: 048
     Dates: start: 20220909
  2. CAPECITABINE [Suspect]
     Active Substance: CAPECITABINE
     Indication: Breast cancer female
     Dosage: 150 MG 1 TAB BID BY MOUTH
     Route: 048
     Dates: start: 20220909

REACTIONS (3)
  - Tongue discomfort [None]
  - Throat irritation [None]
  - Dysphagia [None]

NARRATIVE: CASE EVENT DATE: 20230218
